FAERS Safety Report 10093064 (Version 1)
Quarter: 2014Q2

REPORT INFORMATION
  Report Type: Spontaneous
  Country: US (occurrence: US)
  Receive Date: 20140421
  Receipt Date: 20140421
  Transmission Date: 20141212
  Serious: No
  Sender: FDA-Public Use
  Company Number: US-SA-2013SA105690

PATIENT
  Age: 66 Year
  Sex: Female

DRUGS (3)
  1. ALLEGRA [Suspect]
     Indication: MULTIPLE ALLERGIES
     Route: 048
  2. ALLEGRA [Suspect]
     Indication: MULTIPLE ALLERGIES
     Route: 065
  3. SINGULAIR [Concomitant]
     Indication: ASTHMA
     Route: 065

REACTIONS (2)
  - Nasal dryness [Not Recovered/Not Resolved]
  - Drug ineffective [Unknown]
